FAERS Safety Report 9635390 (Version 1)
Quarter: 2013Q4

REPORT INFORMATION
  Report Type: Spontaneous
  Country: CH (occurrence: CH)
  Receive Date: 20131021
  Receipt Date: 20131021
  Transmission Date: 20140711
  Serious: Yes (Other)
  Sender: FDA-Public Use
  Company Number: CH-009507513-1310CHE007801

PATIENT
  Age: 44 Year
  Sex: Female

DRUGS (2)
  1. REMERON [Suspect]
     Dosage: 6-7 DF AT ONCE / 180-210 MG
     Route: 048
     Dates: start: 20130925, end: 20130925
  2. BROMAZEPAM [Suspect]
     Dosage: UNK, UNKNOWN
     Route: 048
     Dates: start: 20130925, end: 20130925

REACTIONS (5)
  - Suicide attempt [Recovered/Resolved]
  - Hypokalaemia [Recovered/Resolved]
  - Oxygen saturation decreased [Recovered/Resolved]
  - Tachycardia [Recovered/Resolved]
  - Vomiting [Recovered/Resolved]
